FAERS Safety Report 8692150 (Version 2)
Quarter: 2012Q4

REPORT INFORMATION
  Report Type: Spontaneous
  Country: US (occurrence: None)
  Receive Date: 20120713
  Receipt Date: 20120907
  Transmission Date: 20130627
  Serious: Yes (Death)
  Sender: FDA-Public Use
  Company Number: JPI-P-022321

PATIENT
  Age: 28 Year
  Sex: Male

DRUGS (3)
  1. XYREM [Suspect]
     Indication: CATAPLEXY
     Dosage: 4.5 gm (2.25 gm,2 in 1 D),Oral
     Route: 048
     Dates: start: 20091120
  2. XYREM [Suspect]
     Indication: CATAPLEXY
     Dosage: 4.5 GM (2.25 GM, 2 IN 1 D), ORAL, (UNKNOWN), ORAL, 9 GM (4.5 GM, 2 IN 1 D), ORAL
     Route: 048
  3. XYREM [Suspect]
     Indication: CATAPLEXY
     Dosage: 9 gm (4.5 gm,2 in 1 D),Oral
     Route: 048
     Dates: end: 20120526

REACTIONS (3)
  - Drug dose omission [None]
  - Initial insomnia [None]
  - Middle insomnia [None]
